FAERS Safety Report 5477263-7 (Version None)
Quarter: 2007Q3

REPORT INFORMATION
  Report Type: 
  Country: None (occurrence: None)
  Receive Date: 20070904
  Receipt Date: 20070703
  Transmission Date: 20080115
  Serious: No
  Sender: FDA-Public Use
  Company Number: PHEH2007US07161

PATIENT
  Age: 47 Year
  Sex: Female
  Weight: 77.1 kg

DRUGS (4)
  1. ENABLEX [Suspect]
     Indication: HYPERTONIC BLADDER
     Dosage: 7.5 MG,QD,ORAL
     Route: 048
     Dates: start: 20070313, end: 20070418
  2. PROPRANOLOL [Concomitant]
  3. PAXIL [Concomitant]
  4. LIPITOR [Concomitant]

REACTIONS (6)
  - CYST [None]
  - DRY EYE [None]
  - EYE INFECTION [None]
  - HORDEOLUM [None]
  - THERAPEUTIC RESPONSE UNEXPECTED [None]
  - VISION BLURRED [None]
